FAERS Safety Report 24293322 (Version 1)
Quarter: 2024Q3

REPORT INFORMATION
  Report Type: Spontaneous
  Country: US (occurrence: None)
  Receive Date: 20240906
  Receipt Date: 20240906
  Transmission Date: 20241016
  Serious: No
  Sender: DOMPE FARMACEUTICI
  Company Number: US-FARMAPROD-202401-0011

PATIENT
  Age: 70 Year
  Sex: Female

DRUGS (12)
  1. OXERVATE [Suspect]
     Active Substance: CENEGERMIN-BKBJ
     Indication: Neurotrophic keratopathy
     Route: 047
     Dates: start: 20231228
  2. OMEPRAZOLE [Concomitant]
     Active Substance: OMEPRAZOLE
  3. CLARITIN [Concomitant]
     Active Substance: LORATADINE
  4. REFRESH TEARS [Concomitant]
     Active Substance: CARBOXYMETHYLCELLULOSE SODIUM
  5. FLUOROMETHOLONE [Concomitant]
     Active Substance: FLUOROMETHOLONE
  6. DORZOLAMIDE [Concomitant]
     Active Substance: DORZOLAMIDE
  7. ROSUVASTATIN CALCIUM [Concomitant]
     Active Substance: ROSUVASTATIN CALCIUM
  8. COMBIGAN [Concomitant]
     Active Substance: BRIMONIDINE TARTRATE\TIMOLOL MALEATE
     Dosage: 0.2%-0.5%
  9. CITALOPRAM HYDROBROMIDE [Concomitant]
     Active Substance: CITALOPRAM HYDROBROMIDE
  10. VITAMIN D3 [Concomitant]
     Active Substance: CHOLECALCIFEROL
  11. ASPIRIN [Concomitant]
     Active Substance: ASPIRIN
  12. UNSPECIFIED INGREDIENT [Concomitant]
     Active Substance: UNSPECIFIED INGREDIENT

REACTIONS (3)
  - Product dose omission issue [Unknown]
  - Eyelid pain [Unknown]
  - Eyelid irritation [Unknown]

NARRATIVE: CASE EVENT DATE: 20231228
